FAERS Safety Report 4320750-5 (Version None)
Quarter: 2004Q1

REPORT INFORMATION
  Report Type: 
  Country: None (occurrence: None)
  Receive Date: 20040322
  Receipt Date: 20040304
  Transmission Date: 20041129
  Serious: Yes (Death)
  Sender: FDA-Public Use
  Company Number: JP-ROCHE-361012

PATIENT
  Age: 68 Year
  Sex: Male

DRUGS (4)
  1. TAMIFLU [Suspect]
     Route: 048
     Dates: start: 20040301, end: 20040302
  2. ACETAMINOPHEN [Concomitant]
     Route: 048
     Dates: start: 20040301
  3. FLOMOX [Concomitant]
     Route: 048
     Dates: start: 20040301
  4. MUCOSTA [Concomitant]
     Route: 048
     Dates: start: 20040301

REACTIONS (4)
  - CULTURE THROAT POSITIVE [None]
  - SHOCK [None]
  - STREPTOCOCCAL INFECTION [None]
  - TOXIC SHOCK SYNDROME [None]
